FAERS Safety Report 5005741-3 (Version None)
Quarter: 2006Q2

REPORT INFORMATION
  Report Type: 
  Country: None (occurrence: None)
  Receive Date: 20060517
  Receipt Date: 20060517
  Transmission Date: 20061013
  Serious: Yes (Other)
  Sender: FDA-Public Use
  Company Number: None

PATIENT
  Sex: Female
  Weight: 60.4191 kg

DRUGS (14)
  1. NIFEDIPINE [Suspect]
     Indication: HYPERTENSION
     Dosage: 90 MG   DAILY   ORAL
     Route: 048
     Dates: start: 20060119, end: 20060331
  2. VERAPAMIL [Suspect]
     Indication: HYPERTENSION
     Dosage: 240 MG   DAILY   ORAL
     Route: 048
     Dates: end: 19980101
  3. IMDUR [Concomitant]
  4. HYZAAR [Concomitant]
  5. LIPITOR [Concomitant]
  6. ACCOLATE [Concomitant]
  7. FUROSEMIDE [Concomitant]
  8. FOSAMAX [Concomitant]
  9. FISH OIL [Concomitant]
  10. KLOR-CON [Concomitant]
  11. ADVAIR DISKUS 100/50 [Concomitant]
  12. CALCIUM W/VIT-D [Concomitant]
  13. M.V.I. [Concomitant]
  14. CALAN [Concomitant]

REACTIONS (3)
  - PAIN IN JAW [None]
  - PHARMACEUTICAL PRODUCT COMPLAINT [None]
  - SENSATION OF HEAVINESS [None]
